FAERS Safety Report 6794554-8 (Version None)
Quarter: 2010Q2

REPORT INFORMATION
  Report Type: 
  Country: None (occurrence: None)
  Receive Date: 20100625
  Receipt Date: 20100615
  Transmission Date: 20101027
  Serious: Yes (Disabling, Other)
  Sender: FDA-Public Use
  Company Number: US-PFIZER INC-2010069753

PATIENT
  Sex: Female

DRUGS (5)
  1. GEODON [Suspect]
     Dosage: UNK
  2. LYRICA [Suspect]
     Indication: MAJOR DEPRESSION
     Dosage: 200 MG, 2X/DAY
  3. LYRICA [Suspect]
     Indication: NEUROPATHY PERIPHERAL
  4. SEROQUEL [Concomitant]
     Dosage: UNK
  5. LORAZEPAM [Concomitant]
     Dosage: UNK

REACTIONS (2)
  - PARKINSONISM [None]
  - SKIN ULCER [None]
